FAERS Safety Report 12693324 (Version 4)
Quarter: 2017Q1

REPORT INFORMATION
  Report Type: Spontaneous
  Country: US (occurrence: US)
  Receive Date: 20160829
  Receipt Date: 20170123
  Transmission Date: 20170428
  Serious: Yes (Hospitalization, Other)
  Sender: FDA-Public Use
  Company Number: US-PFIZER INC-2016399399

PATIENT
  Age: 79 Year
  Sex: Female
  Weight: 63.39 kg

DRUGS (12)
  1. CELEBREX [Suspect]
     Active Substance: CELECOXIB
     Dosage: 200 MG, 1X/DAY (DAILY TOOK IN MORNING)
     Dates: start: 20160722, end: 20160807
  2. CELEBREX [Suspect]
     Active Substance: CELECOXIB
     Indication: CYSTITIS
     Dosage: 200 MG, 1X/DAY (IN MORNING)
     Dates: start: 20160802, end: 20160812
  3. SYNTHROID [Concomitant]
     Active Substance: LEVOTHYROXINE SODIUM
     Dosage: 50 UG, UNK
  4. SYNTHROID [Concomitant]
     Active Substance: LEVOTHYROXINE SODIUM
     Dosage: 50 MG, 1X/DAY (AM)
  5. ATORVASTATIN [Concomitant]
     Active Substance: ATORVASTATIN
     Dosage: 10 MG, 1X/DAY (NOON)
  6. CELEBREX [Suspect]
     Active Substance: CELECOXIB
     Indication: LIMB INJURY
     Dosage: 200 MG, 1X/DAY, ONCE IN THE MORNING
     Dates: start: 20160722, end: 201608
  7. AVAPRO [Concomitant]
     Active Substance: IRBESARTAN
     Indication: HYPERTENSION
     Dosage: 300 MG, 1X/DAY, ONCE AT NIGHT
  8. BACTRIM [Concomitant]
     Active Substance: SULFAMETHOXAZOLE\TRIMETHOPRIM
     Dosage: UNK UNK, 2X/DAY
     Dates: end: 20160823
  9. BACTRIM [Concomitant]
     Active Substance: SULFAMETHOXAZOLE\TRIMETHOPRIM
     Dosage: UNK
     Dates: end: 20160826
  10. CELEBREX [Suspect]
     Active Substance: CELECOXIB
     Dosage: 200 MG, 1X/DAY (EVERY AM)
     Route: 048
     Dates: start: 20160720
  11. SIMVASTATIN. [Concomitant]
     Active Substance: SIMVASTATIN
     Dosage: 10 MG, UNK
  12. NITROFURANTOIN. [Concomitant]
     Active Substance: NITROFURANTOIN
     Dosage: 1 DF, 2X/DAY (7 DAY)
     Route: 048
     Dates: start: 20160827, end: 20160904

REACTIONS (14)
  - Off label use [Recovered/Resolved]
  - Syncope [Recovered/Resolved]
  - Abasia [Recovered/Resolved]
  - Cough [Recovered/Resolved with Sequelae]
  - Urinary tract infection [Recovered/Resolved]
  - Haematochezia [Recovered/Resolved]
  - Nausea [Recovered/Resolved]
  - Feeding disorder [Recovered/Resolved]
  - Large intestinal haemorrhage [Recovered/Resolved]
  - Haemorrhage [Unknown]
  - Muscle spasms [Recovered/Resolved]
  - Malaise [Recovered/Resolved]
  - Blood urine present [Not Recovered/Not Resolved]
  - Impaired work ability [Recovered/Resolved]

NARRATIVE: CASE EVENT DATE: 20160722
